FAERS Safety Report 5507280-X (Version None)
Quarter: 2007Q4

REPORT INFORMATION
  Report Type: 
  Country: None (occurrence: None)
  Receive Date: 20071106
  Receipt Date: 20071029
  Transmission Date: 20080405
  Serious: Yes (Other)
  Sender: FDA-Public Use
  Company Number: PHNU2007PL03654

PATIENT
  Age: 44 Year
  Sex: Female

DRUGS (1)
  1. ELIDEL [Suspect]
     Indication: EYELID OEDEMA
     Route: 061
     Dates: start: 20071001

REACTIONS (10)
  - APPLICATION SITE ERYTHEMA [None]
  - APPLICATION SITE IRRITATION [None]
  - APPLICATION SITE PRURITUS [None]
  - EYE IRRITATION [None]
  - EYE PRURITUS [None]
  - LABORATORY TEST ABNORMAL [None]
  - LACRIMAL DISORDER [None]
  - OCULAR HYPERAEMIA [None]
  - RHEUMATOID ARTHRITIS [None]
  - SKIN EXFOLIATION [None]
